FAERS Safety Report 16321733 (Version 6)
Quarter: 2025Q1

REPORT INFORMATION
  Report Type: Spontaneous
  Country: BE (occurrence: BE)
  Receive Date: 20190516
  Receipt Date: 20250214
  Transmission Date: 20250408
  Serious: Yes (Death, Hospitalization, Other)
  Sender: NOVARTIS
  Company Number: None

PATIENT
  Age: 55 Year
  Sex: Female

DRUGS (7)
  1. GILENYA [Suspect]
     Active Substance: FINGOLIMOD HYDROCHLORIDE
     Indication: Relapsing-remitting multiple sclerosis
     Route: 048
     Dates: start: 201402, end: 20181005
  2. GILENYA [Suspect]
     Active Substance: FINGOLIMOD HYDROCHLORIDE
     Dosage: 0.5 MG, QD
     Route: 065
  3. TEMOZOLOMIDE EG [Concomitant]
     Indication: Glioblastoma
     Route: 065
  4. LOMUSTINE [Concomitant]
     Active Substance: LOMUSTINE
     Indication: Glioblastoma
     Route: 065
  5. LEVOTHYROXINE [Concomitant]
     Active Substance: LEVOTHYROXINE
     Indication: Hypothyroidism
     Dosage: 125 UG, QD
     Route: 048
     Dates: end: 201903
  6. LEVOTHYROXINE [Concomitant]
     Active Substance: LEVOTHYROXINE
     Indication: Relapsing-remitting multiple sclerosis
  7. MAGNESIUM [Concomitant]
     Active Substance: MAGNESIUM
     Indication: Product used for unknown indication
     Route: 048

REACTIONS (13)
  - Brain oedema [Fatal]
  - Language disorder [Fatal]
  - Central nervous system lesion [Fatal]
  - Peripheral sensory neuropathy [Fatal]
  - Glioblastoma [Fatal]
  - Dysarthria [Fatal]
  - Hypoaesthesia [Fatal]
  - Nystagmus [Fatal]
  - Hemiparesis [Fatal]
  - Ataxia [Fatal]
  - Lymphopenia [Unknown]
  - Sensory disturbance [Unknown]
  - Drug ineffective [Unknown]

NARRATIVE: CASE EVENT DATE: 20181001
